FAERS Safety Report 13486128 (Version 2)
Quarter: 2017Q2

REPORT INFORMATION
  Report Type: Spontaneous
  Country: US (occurrence: US)
  Receive Date: 20170426
  Receipt Date: 20170622
  Transmission Date: 20170830
  Serious: Yes (Hospitalization)
  Sender: FDA-Public Use
  Company Number: US-JNJFOC-20170425145

PATIENT
  Age: 33 Year
  Sex: Male

DRUGS (2)
  1. XARELTO [Suspect]
     Active Substance: RIVAROXABAN
     Indication: DEEP VEIN THROMBOSIS
     Dosage: VARIOUS DOSES OF 15 MG + 20 MG
     Route: 048
     Dates: start: 20160201, end: 20161004
  2. XARELTO [Suspect]
     Active Substance: RIVAROXABAN
     Indication: HYPERCOAGULATION
     Dosage: VARIOUS DOSES OF 15 MG + 20 MG
     Route: 048
     Dates: start: 20160201, end: 20161004

REACTIONS (2)
  - Cerebral haematoma [Recovering/Resolving]
  - Immune thrombocytopenic purpura [Recovering/Resolving]

NARRATIVE: CASE EVENT DATE: 201610
